FAERS Safety Report 25660451 (Version 4)
Quarter: 2025Q3

REPORT INFORMATION
  Report Type: Spontaneous
  Country: US (occurrence: US)
  Receive Date: 20250808
  Receipt Date: 20250828
  Transmission Date: 20251020
  Serious: Yes (Hospitalization, Other)
  Sender: ABBVIE
  Company Number: US-ABBVIE-6406720

PATIENT
  Age: 78 Year
  Sex: Female
  Weight: 60 kg

DRUGS (1)
  1. ELAHERE [Suspect]
     Active Substance: MIRVETUXIMAB SORAVTANSINE-GYNX
     Indication: Ovarian cancer
     Dosage: ELAHERE 5 MG/ML INJECTION
     Route: 042
     Dates: start: 20250723

REACTIONS (9)
  - Dyspnoea [Not Recovered/Not Resolved]
  - Pulmonary thrombosis [Unknown]
  - Loss of consciousness [Unknown]
  - Thrombosis [Unknown]
  - Pneumonia [Unknown]
  - Faeces discoloured [Unknown]
  - Diarrhoea [Recovered/Resolved]
  - Cough [Recovered/Resolved]
  - Pain [Unknown]

NARRATIVE: CASE EVENT DATE: 20250101
